FAERS Safety Report 16040136 (Version 6)
Quarter: 2019Q2

REPORT INFORMATION
  Report Type: Report from Study
  Country: None (occurrence: US)
  Receive Date: 20190306
  Receipt Date: 20190520
  Transmission Date: 20190711
  Serious: Yes (Hospitalization, Other)
  Sender: FDA-Public Use
  Company Number: US-ABBVIE-19K-163-2688122-00

PATIENT
  Age: 74 Year
  Sex: Female
  Weight: 64.01 kg

DRUGS (11)
  1. ZOLOFT [Suspect]
     Active Substance: SERTRALINE HYDROCHLORIDE
     Route: 065
     Dates: start: 2019, end: 2019
  2. QUESTRAN [Concomitant]
     Active Substance: CHOLESTYRAMINE
     Indication: PRODUCT USED FOR UNKNOWN INDICATION
  3. ZOLOFT [Suspect]
     Active Substance: SERTRALINE HYDROCHLORIDE
     Route: 065
     Dates: start: 2019
  4. POTASSIUM [Concomitant]
     Active Substance: POTASSIUM
     Indication: PRODUCT USED FOR UNKNOWN INDICATION
  5. PREDNISONE. [Concomitant]
     Active Substance: PREDNISONE
     Indication: PRODUCT USED FOR UNKNOWN INDICATION
  6. NITRAMIN [Concomitant]
     Indication: PRODUCT USED FOR UNKNOWN INDICATION
  7. QUESTRAN [Concomitant]
     Active Substance: CHOLESTYRAMINE
     Indication: PRODUCT USED FOR UNKNOWN INDICATION
  8. LANAX [Concomitant]
     Indication: PRODUCT USED FOR UNKNOWN INDICATION
  9. ZOLOFT [Suspect]
     Active Substance: SERTRALINE HYDROCHLORIDE
     Indication: ANTIDEPRESSANT THERAPY
     Route: 065
     Dates: start: 2019, end: 2019
  10. VITAMIN B12 [Concomitant]
     Active Substance: CYANOCOBALAMIN
     Indication: PRODUCT USED FOR UNKNOWN INDICATION
  11. HUMIRA [Suspect]
     Active Substance: ADALIMUMAB
     Indication: CROHN^S DISEASE
     Route: 058
     Dates: start: 201812

REACTIONS (22)
  - Colitis ulcerative [Unknown]
  - Incorrect dose administered [Unknown]
  - Device issue [Unknown]
  - Dizziness [Recovering/Resolving]
  - Somnolence [Not Recovered/Not Resolved]
  - Dizziness [Recovering/Resolving]
  - Migraine [Not Recovered/Not Resolved]
  - Dyspepsia [Recovered/Resolved]
  - Large intestine polyp [Recovered/Resolved]
  - Asthenia [Recovering/Resolving]
  - Contusion [Recovering/Resolving]
  - Stress [Unknown]
  - Anger [Recovered/Resolved]
  - Tremor [Recovered/Resolved]
  - Hypertension [Recovered/Resolved]
  - Lung disorder [Not Recovered/Not Resolved]
  - Hypotension [Recovering/Resolving]
  - Gastrointestinal infection [Recovering/Resolving]
  - Pain in extremity [Recovering/Resolving]
  - Colitis [Recovering/Resolving]
  - Gait inability [Recovering/Resolving]
  - Injection site pain [Not Recovered/Not Resolved]

NARRATIVE: CASE EVENT DATE: 201812
